FAERS Safety Report 7283265-0 (Version None)
Quarter: 2011Q1

REPORT INFORMATION
  Report Type: 
  Country: None (occurrence: None)
  Receive Date: 20110209
  Receipt Date: 20110201
  Transmission Date: 20110831
  Serious: Yes (Other)
  Sender: FDA-Public Use
  Company Number: FR-SANOFI-AVENTIS-2011SA007178

PATIENT
  Age: 64 Year
  Sex: Female

DRUGS (8)
  1. MULTAQ [Suspect]
     Route: 048
     Dates: start: 20110115, end: 20110121
  2. SOTALOL HCL [Concomitant]
     Route: 065
  3. PREVISCAN [Concomitant]
     Route: 048
  4. COVERSYL /FRA/ [Concomitant]
     Route: 048
  5. PLAVIX [Concomitant]
     Route: 048
  6. MOLSIDOMINE [Concomitant]
     Route: 048
     Dates: start: 20080101
  7. TAHOR [Concomitant]
     Route: 048
  8. CARDENSIEL [Concomitant]
     Route: 048

REACTIONS (3)
  - CHOLESTASIS [None]
  - TRANSAMINASES INCREASED [None]
  - HEPATIC PAIN [None]
